FAERS Safety Report 21595626 (Version 1)
Quarter: 2022Q4

REPORT INFORMATION
  Report Type: Spontaneous
  Country: None (occurrence: US)
  Receive Date: 20221115
  Receipt Date: 20221115
  Transmission Date: 20230113
  Serious: Yes (Hospitalization, Other)
  Sender: FDA-Public Use
  Company Number: US-Oxford Pharmaceuticals, LLC-2134874

PATIENT
  Age: 57 Year
  Sex: Male

DRUGS (3)
  1. AMLODIPINE BESYLATE [Suspect]
     Active Substance: AMLODIPINE BESYLATE
     Indication: Suicide attempt
  2. BENAZEPRIL [Suspect]
     Active Substance: BENAZEPRIL HYDROCHLORIDE
  3. GABAPENTIN [Suspect]
     Active Substance: GABAPENTIN

REACTIONS (10)
  - Shock [Recovering/Resolving]
  - Suicide attempt [Unknown]
  - Distributive shock [Recovering/Resolving]
  - Electrolyte imbalance [Unknown]
  - Renal impairment [Recovering/Resolving]
  - Tongue oedema [Unknown]
  - Oropharyngeal oedema [Unknown]
  - Cardiac arrest [Recovering/Resolving]
  - Acute respiratory distress syndrome [Unknown]
  - Intentional overdose [Unknown]
